FAERS Safety Report 21994790 (Version 2)
Quarter: 2023Q1

REPORT INFORMATION
  Report Type: Report from Study
  Country: BR (occurrence: BR)
  Receive Date: 20230215
  Receipt Date: 20230224
  Transmission Date: 20230418
  Serious: Yes (Other)
  Sender: FDA-Public Use
  Company Number: BR-MYLANLABS-2023M1016086

PATIENT
  Sex: Male
  Weight: 96 kg

DRUGS (2)
  1. XALATAN [Suspect]
     Active Substance: LATANOPROST
     Indication: Glaucoma
     Dosage: 1 GTT DROPS, PM
     Dates: start: 2019
  2. TIMOLOL MALEATE [Concomitant]
     Active Substance: TIMOLOL MALEATE
     Indication: Glaucoma
     Dosage: 1 GTT DROPS, BID (MORNING AND AT NIGHT)

REACTIONS (5)
  - Drug dependence [Not Recovered/Not Resolved]
  - Product availability issue [Unknown]
  - Vision blurred [Unknown]
  - Eye pain [Unknown]
  - Headache [Unknown]

NARRATIVE: CASE EVENT DATE: 20190101
